FAERS Safety Report 20042799 (Version 1)
Quarter: 2021Q4

REPORT INFORMATION
  Report Type: Spontaneous
  Country: DE (occurrence: DE)
  Receive Date: 20211108
  Receipt Date: 20211108
  Transmission Date: 20220303
  Serious: Yes (Other)
  Sender: FDA-Public Use
  Company Number: DE-NOVARTISPH-NVSC2021DE248956

PATIENT
  Age: 38 Year
  Sex: Female
  Weight: 63 kg

DRUGS (4)
  1. TASIGNA [Suspect]
     Active Substance: NILOTINIB
     Indication: Chronic myeloid leukaemia
     Dosage: 600 (MG/D) 2 SEPARATED DOSES
     Route: 048
     Dates: start: 20201115, end: 20201216
  2. LEVOTHYROXINE SODIUM [Concomitant]
     Active Substance: LEVOTHYROXINE SODIUM
     Indication: Hypothyroidism
     Dosage: 100 (UG/D)
     Route: 048
     Dates: start: 20201115, end: 20201217
  3. PROGESTERONE [Concomitant]
     Active Substance: PROGESTERONE
     Indication: Assisted fertilisation
     Route: 048
     Dates: start: 20201129, end: 20201217
  4. ESTRADIOL VALERATE [Concomitant]
     Active Substance: ESTRADIOL VALERATE
     Indication: Assisted fertilisation
     Route: 048
     Dates: start: 20201129, end: 20201217

REACTIONS (2)
  - Abortion spontaneous [Recovered/Resolved]
  - Maternal exposure during pregnancy [Unknown]
